FAERS Safety Report 17085085 (Version 1)
Quarter: 2019Q4

REPORT INFORMATION
  Report Type: Spontaneous
  Country: CN (occurrence: CN)
  Receive Date: 20191127
  Receipt Date: 20191127
  Transmission Date: 20200122
  Serious: Yes (Other)
  Sender: FDA-Public Use
  Company Number: CN-ABBVIE-19P-035-3170744-00

PATIENT
  Age: 52 Year
  Sex: Female
  Weight: 56 kg

DRUGS (1)
  1. LIPANTHYL [Suspect]
     Active Substance: FENOFIBRATE
     Indication: HYPERLIPIDAEMIA
     Route: 048
     Dates: start: 20191107, end: 20191108

REACTIONS (2)
  - Pruritus [Recovering/Resolving]
  - Rash erythematous [Recovering/Resolving]

NARRATIVE: CASE EVENT DATE: 20191108
